FAERS Safety Report 13554681 (Version 1)
Quarter: 2017Q2

REPORT INFORMATION
  Report Type: Spontaneous
  Country: US (occurrence: US)
  Receive Date: 20170516
  Receipt Date: 20170516
  Transmission Date: 20170830
  Serious: Yes (Hospitalization)
  Sender: FDA-Public Use
  Company Number: None

PATIENT
  Age: 87 Year
  Sex: Male

DRUGS (1)
  1. REVLIMID [Suspect]
     Active Substance: LENALIDOMIDE
     Indication: PLASMA CELL MYELOMA
     Route: 048
     Dates: start: 20160817, end: 20161228

REACTIONS (7)
  - Fall [None]
  - Tachycardia [None]
  - Constipation [None]
  - Atrial flutter [None]
  - Pneumonia [None]
  - Dysuria [None]
  - Mental status changes [None]

NARRATIVE: CASE EVENT DATE: 20161231
